FAERS Safety Report 18693515 (Version 1)
Quarter: 2021Q1

REPORT INFORMATION
  Report Type: Spontaneous
  Country: US (occurrence: US)
  Receive Date: 20210104
  Receipt Date: 20210104
  Transmission Date: 20210419
  Serious: Yes (Life-Threatening, Other)
  Sender: FDA-Public Use
  Company Number: US-ACCORD-213092

PATIENT
  Age: 76 Year
  Sex: Female

DRUGS (1)
  1. METHOTREXATE. [Suspect]
     Active Substance: METHOTREXATE
     Indication: ARTHRITIS
     Dosage: PATIENT REPORTED TAKING MTX 10 MG DAILY INSTEAD OF WEEKLY FOR HER UNDERLYING ARTHRITIS

REACTIONS (6)
  - Pancytopenia [Recovered/Resolved]
  - Hypoalbuminaemia [Unknown]
  - Skin ulcer [Recovered/Resolved]
  - Inappropriate schedule of product administration [Unknown]
  - Acute kidney injury [Unknown]
  - Mouth ulceration [Recovered/Resolved]
